FAERS Safety Report 8354748-7 (Version None)
Quarter: 2012Q2

REPORT INFORMATION
  Report Type: 
  Country: None (occurrence: None)
  Receive Date: 20120511
  Receipt Date: 20120430
  Transmission Date: 20120825
  Serious: Yes (Other)
  Sender: FDA-Public Use
  Company Number: FR-VIIV HEALTHCARE LIMITED-B0796738A

PATIENT
  Sex: Female
  Weight: 61 kg

DRUGS (3)
  1. ABACAVIR SULFATE/LAMIVUDINE [Suspect]
     Indication: HIV INFECTION
     Dosage: 1UNIT PER DAY
     Route: 048
     Dates: start: 20110928, end: 20120128
  2. ISENTRESS [Concomitant]
     Indication: HIV INFECTION
     Route: 048
     Dates: start: 20100409, end: 20120128
  3. TRUVADA [Concomitant]
     Indication: HIV INFECTION
     Route: 065
     Dates: start: 20070901, end: 20110928

REACTIONS (4)
  - DRUG-INDUCED LIVER INJURY [None]
  - ASTHENIA [None]
  - JAUNDICE [None]
  - HEPATOCELLULAR INJURY [None]
